FAERS Safety Report 9885523 (Version 1)
Quarter: 2014Q1

REPORT INFORMATION
  Report Type: Spontaneous
  Country: US (occurrence: US)
  Receive Date: 20140210
  Receipt Date: 20140210
  Transmission Date: 20141002
  Serious: No
  Sender: FDA-Public Use
  Company Number: US-PFIZER INC-2014035828

PATIENT
  Age: 78 Year
  Sex: Male
  Weight: 121.54 kg

DRUGS (23)
  1. LYRICA [Suspect]
     Dosage: 75 MG, 2X/DAY
  2. LYRICA [Suspect]
     Dosage: 100 MG, 2X/DAY
  3. LOVASTATIN [Concomitant]
     Indication: BLOOD CHOLESTEROL INCREASED
     Dosage: 20 MG, UNK (40 MG, 1/2 EVERY EVENING FOR CHOLESTEROL)
  4. CALCIUM CARBONATE [Concomitant]
     Dosage: 1.25 GM (CA 500 MG) TABLET 1, 2X/DAY
  5. CLONAZEPAM [Concomitant]
     Indication: ANXIETY
     Dosage: 0.5 MG, 2X/DAY (EVENING AND NIGHT WHEN NEEDED)
  6. GABAPENTIN [Concomitant]
     Dosage: 600 MG, 3X/DAY
  7. NITROGLYCERIN [Concomitant]
     Dosage: 0.4, AS NEEDED
  8. ZOLPIDEM [Concomitant]
     Indication: SLEEP DISORDER
     Dosage: 10 MG, 1X/DAY (1 AT NIGHT FOR SLEEP)
  9. CARVEDILOL [Concomitant]
     Dosage: 25 MG, 2X/DAY (MORNING AND EVENING)
  10. OMEGA-3-ACID ETHYL ESTER [Concomitant]
     Dosage: 1000 MG, 3X/DAY
  11. RANITIDINE HYDROCHLORIDE [Concomitant]
     Dosage: 15 MG, 3X/DAY
  12. DIPHENHYDRAMINE HCL [Concomitant]
     Dosage: 25 MG, 1X/DAY (TAKE ONE AT BEDTIME)
  13. CHOLECALCIFEROL [Concomitant]
     Dosage: 1000 UNITS
  14. COLCHICINE [Concomitant]
     Dosage: 0.6 MG, DAILY (TAKE ONE TABLET DAILY)
  15. STOOL SOFTENER [Concomitant]
     Dosage: 2 AT NIGHT
  16. NOVOLOG MIX 70/30 [Concomitant]
     Dosage: UNK
  17. ASCORBIC ACID [Concomitant]
     Dosage: 500 MG, 2X/DAY (MORNING AND EVENING)
  18. FUROSEMIDE [Concomitant]
     Dosage: 40 MG, 2X/DAY (ONE IN THE MORNING AND ONE IN EVENING)
  19. ISOSORBIDE DINITRATE [Concomitant]
     Dosage: 10 MG, 3X/DAY (MORNING, EVENING, NIGHT)
     Route: 048
  20. ALLOPURINOL [Concomitant]
     Dosage: 150 MG, (1/2 IN THE EVENING (NIGHT))
  21. OMEGA 3 [Concomitant]
     Dosage: 1000 MG, 3X/DAY
  22. ASPIRIN [Concomitant]
     Dosage: 325 MG, 1X/DAY (MORNING)
  23. LORTAB [Concomitant]
     Dosage: 7.5

REACTIONS (5)
  - Influenza [Unknown]
  - Neuropathy peripheral [Unknown]
  - Pain in extremity [Unknown]
  - Erythema [Unknown]
  - Anxiety [Unknown]
